FAERS Safety Report 23506507 (Version 1)
Quarter: 2024Q1

REPORT INFORMATION
  Report Type: Spontaneous
  Country: US (occurrence: US)
  Receive Date: 20240209
  Receipt Date: 20240209
  Transmission Date: 20240409
  Serious: No
  Sender: FDA-Public Use
  Company Number: US-IBSA PHARMA INC.-2023IBS000140

PATIENT

DRUGS (1)
  1. TIROSINT-SOL [Suspect]
     Active Substance: LEVOTHYROXINE SODIUM
     Indication: Autoimmune thyroiditis
     Dosage: 175 MICROGRAM, QD
     Route: 048
     Dates: start: 202211

REACTIONS (4)
  - Dry skin [Unknown]
  - Laboratory test abnormal [Unknown]
  - Alopecia [Unknown]
  - Fatigue [Unknown]
